FAERS Safety Report 7508565-8 (Version None)
Quarter: 2011Q2

REPORT INFORMATION
  Report Type: 
  Country: None (occurrence: None)
  Receive Date: 20110527
  Receipt Date: 20110517
  Transmission Date: 20111010
  Serious: Yes (Other)
  Sender: FDA-Public Use
  Company Number: US-ENDO PHARMACEUTICALS INC.-OPER20110114

PATIENT
  Age: 23 Year
  Sex: Male

DRUGS (3)
  1. CLONIDINE [Suspect]
     Indication: WITHDRAWAL SYNDROME
     Dosage: UNK
     Route: 062
     Dates: start: 20110515
  2. CLONIDINE HCL [Suspect]
     Indication: WITHDRAWAL SYNDROME
     Dosage: UNK
     Dates: start: 20110515
  3. OPANA ER [Suspect]
     Indication: DRUG ABUSE
     Dosage: 30 MG
     Dates: start: 20101101, end: 20110515

REACTIONS (3)
  - SOMNOLENCE [None]
  - DRUG ABUSE [None]
  - WITHDRAWAL SYNDROME [None]
